FAERS Safety Report 10166633 (Version 1)
Quarter: 2014Q2

REPORT INFORMATION
  Report Type: Spontaneous
  Country: GB (occurrence: GB)
  Receive Date: 20140512
  Receipt Date: 20140512
  Transmission Date: 20141212
  Serious: Yes (Other)
  Sender: FDA-Public Use
  Company Number: GB-JNJFOC-20140503401

PATIENT
  Age: 46 Year
  Sex: Male
  Weight: 140 kg

DRUGS (3)
  1. XARELTO [Suspect]
     Indication: PRODUCT USED FOR UNKNOWN INDICATION
     Route: 048
     Dates: start: 20140205
  2. WARFARIN SODIUM [Concomitant]
     Route: 065
     Dates: start: 20140417
  3. DALTEPARIN [Concomitant]
     Route: 065
     Dates: start: 20140417

REACTIONS (3)
  - Rash erythematous [Recovering/Resolving]
  - Anxiety [Recovering/Resolving]
  - Depressed mood [Recovering/Resolving]
